FAERS Safety Report 25755599 (Version 2)
Quarter: 2025Q4

REPORT INFORMATION
  Report Type: Spontaneous
  Country: CH (occurrence: CH)
  Receive Date: 20250903
  Receipt Date: 20251027
  Transmission Date: 20260118
  Serious: No
  Sender: DAIICHI
  Company Number: CH-DSJP-DS-2025-162701-CH

PATIENT

DRUGS (1)
  1. ENHERTU [Suspect]
     Active Substance: FAM-TRASTUZUMAB DERUXTECAN-NXKI
     Indication: Pancreatic carcinoma
     Dosage: UNK
     Route: 065

REACTIONS (2)
  - Product prescribing issue [Unknown]
  - No adverse event [Unknown]
